FAERS Safety Report 10223165 (Version 2)
Quarter: 2014Q2

REPORT INFORMATION
  Report Type: Spontaneous
  Country: SE (occurrence: SE)
  Receive Date: 20140608
  Receipt Date: 20140611
  Transmission Date: 20141212
  Serious: Yes (Hospitalization, Other)
  Sender: FDA-Public Use
  Company Number: SE-TEVA-429259ISR

PATIENT
  Age: 60 Year
  Sex: Female
  Weight: 77 kg

DRUGS (13)
  1. VALACICLOVIR [Suspect]
     Indication: HERPES VIRUS INFECTION
     Dosage: 6 GRAM DAILY;
     Route: 048
  2. ACICLOVIR [Suspect]
     Route: 042
  3. AMITRIPTYLINE [Concomitant]
     Dosage: 50MG 1 X 1
     Route: 065
  4. CALCIUM, COLECALCIFEROL [Concomitant]
     Dosage: 1 X 2
     Route: 065
  5. ENALAPRIL [Concomitant]
     Dosage: 10MG 1 X 1
     Route: 065
  6. GABAPENTIN [Concomitant]
     Dosage: 600MG 1 X 3
     Route: 065
  7. METOPROLOL [Concomitant]
     Dosage: 100MG 1 X 1
     Route: 065
  8. BACLOFEN [Concomitant]
     Dosage: 10MG 1 + 2 + 1
     Route: 065
  9. METHENAMINE [Concomitant]
     Dosage: 1G 1 X 3
     Route: 065
  10. FUROSEMIDE [Concomitant]
     Dosage: 80MG 1 X 1
     Route: 065
  11. VENLAFAXINE [Concomitant]
     Dosage: 1 X 2
     Route: 065
  12. MONTELUKAST [Concomitant]
     Route: 055
  13. SALMETEROL, FLUTICASONE PROPIONATE [Concomitant]
     Route: 055

REACTIONS (11)
  - Somnolence [Recovered/Resolved]
  - Musculoskeletal stiffness [Unknown]
  - Muscular weakness [Unknown]
  - Nausea [Unknown]
  - Vomiting [Unknown]
  - Headache [Unknown]
  - Speech disorder [Recovered/Resolved]
  - Dysstasia [Unknown]
  - Renal impairment [Recovered/Resolved]
  - Neuropsychiatric syndrome [Recovering/Resolving]
  - Neurogenic bladder [Unknown]
